FAERS Safety Report 19646225 (Version 1)
Quarter: 2021Q3

REPORT INFORMATION
  Report Type: Spontaneous
  Country: US (occurrence: US)
  Receive Date: 20210728
  Receipt Date: 20210728
  Transmission Date: 20211014
  Serious: No
  Sender: FDA-Public Use
  Company Number: None

PATIENT

DRUGS (3)
  1. LITHIUM CARBONATE. [Suspect]
     Active Substance: LITHIUM CARBONATE
  2. BENADRYL [Concomitant]
     Active Substance: DIPHENHYDRAMINE HYDROCHLORIDE
  3. CALCIUM [Concomitant]
     Active Substance: CALCIUM

REACTIONS (5)
  - Hypersomnia [None]
  - Dependence [None]
  - Skin disorder [None]
  - Bladder disorder [None]
  - Ill-defined disorder [None]
